FAERS Safety Report 10625780 (Version 2)
Quarter: 2014Q4

REPORT INFORMATION
  Report Type: Spontaneous
  Country: JP (occurrence: JP)
  Receive Date: 20141204
  Receipt Date: 20141210
  Transmission Date: 20150529
  Serious: Yes (Other)
  Sender: FDA-Public Use
  Company Number: JP-PFIZER INC-2014332921

PATIENT
  Age: 38 Year
  Sex: Female

DRUGS (1)
  1. CABERGOLINE. [Suspect]
     Active Substance: CABERGOLINE
     Indication: OVULATION DISORDER
     Dosage: UNK, EVERY MONDAY
     Route: 048
     Dates: start: 20140818, end: 2014

REACTIONS (5)
  - Condition aggravated [Unknown]
  - Localised oedema [Recovered/Resolved]
  - Ovarian cyst [Unknown]
  - Oedema peripheral [Recovered/Resolved]
  - Weight increased [Unknown]

NARRATIVE: CASE EVENT DATE: 2014
